FAERS Safety Report 13185568 (Version 2)
Quarter: 2017Q1

REPORT INFORMATION
  Report Type: Report from Study
  Country: None (occurrence: CA)
  Receive Date: 20170203
  Receipt Date: 20170221
  Transmission Date: 20170428
  Serious: Yes (Life-Threatening, Hospitalization, Other)
  Sender: FDA-Public Use
  Company Number: CA-ABBVIE-17K-028-1859872-00

PATIENT
  Age: 35 Year
  Sex: Male

DRUGS (1)
  1. HUMIRA [Suspect]
     Active Substance: ADALIMUMAB
     Indication: CROHN^S DISEASE
     Route: 058
     Dates: start: 20110202

REACTIONS (9)
  - Ejection fraction decreased [Recovering/Resolving]
  - Sinus tachycardia [Recovering/Resolving]
  - Cardiomyopathy [Recovering/Resolving]
  - Systolic dysfunction [Recovering/Resolving]
  - Cardiac failure chronic [Recovering/Resolving]
  - Chest pain [Recovering/Resolving]
  - Hyperhidrosis [Recovering/Resolving]
  - Cardiac failure congestive [Recovering/Resolving]
  - Left ventricular dilatation [Recovering/Resolving]

NARRATIVE: CASE EVENT DATE: 20170115
